FAERS Safety Report 4405312-3 (Version None)
Quarter: 2004Q3

REPORT INFORMATION
  Report Type: 
  Country: None (occurrence: None)
  Receive Date: 20040723
  Receipt Date: 20040716
  Transmission Date: 20050211
  Serious: Yes (Hospitalization)
  Sender: FDA-Public Use
  Company Number: 200417127GDDC

PATIENT
  Age: 82 Year
  Sex: Male

DRUGS (5)
  1. LANTUS [Suspect]
     Dosage: DOSE UNIT: UNITS
     Route: 058
  2. BETA BLOCKING AGENTS [Concomitant]
  3. CARDIOVASCULAR SYSTEM DRUGS [Concomitant]
  4. SIMVASTATIN [Concomitant]
  5. GLICLAZIDE [Concomitant]

REACTIONS (2)
  - MEDICATION ERROR [None]
  - RESPIRATORY DISORDER [None]
